FAERS Safety Report 18609447 (Version 1)
Quarter: 2020Q4

REPORT INFORMATION
  Report Type: Spontaneous
  Country: US (occurrence: US)
  Receive Date: 20201214
  Receipt Date: 20201214
  Transmission Date: 20210114
  Serious: Yes (Hospitalization, Other)
  Sender: FDA-Public Use
  Company Number: US-AUROBINDO-AUR-APL-2020-060123

PATIENT
  Age: 10 Year
  Sex: Male

DRUGS (1)
  1. METHYLPREDNISOLONE. [Suspect]
     Active Substance: METHYLPREDNISOLONE
     Indication: IMMUNE THROMBOCYTOPENIA
     Dosage: 30 MILLIGRAM/KILOGRAM (ON DAYS 6 TO 8)
     Route: 065

REACTIONS (2)
  - Drug ineffective [Recovered/Resolved]
  - Behaviour disorder [Unknown]
